FAERS Safety Report 6048642-4 (Version None)
Quarter: 2009Q1

REPORT INFORMATION
  Report Type: 
  Country: None (occurrence: None)
  Receive Date: 20090123
  Receipt Date: 20090115
  Transmission Date: 20090719
  Serious: Yes (Other)
  Sender: FDA-Public Use
  Company Number: US-ELI_LILLY_AND_COMPANY-US200901002590

PATIENT
  Sex: Female

DRUGS (3)
  1. HUMULIN R [Suspect]
  2. HUMULIN N [Suspect]
     Dates: start: 20090115, end: 20090115
  3. SORIATANE [Concomitant]
     Indication: SKIN CANCER
     Dates: start: 20070101

REACTIONS (2)
  - BLOOD GLUCOSE INCREASED [None]
  - SKIN CANCER [None]
